FAERS Safety Report 13480439 (Version 1)
Quarter: 2017Q2

REPORT INFORMATION
  Report Type: Report from Study
  Country: US (occurrence: US)
  Receive Date: 20170425
  Receipt Date: 20170425
  Transmission Date: 20170830
  Serious: Yes (Hospitalization, Other)
  Sender: FDA-Public Use
  Company Number: US-BRISTOL-MYERS SQUIBB COMPANY-BMS-2017-023007

PATIENT
  Age: 68 Year
  Sex: Female
  Weight: 88.6 kg

DRUGS (2)
  1. NIVOLUMAB [Suspect]
     Active Substance: NIVOLUMAB
     Indication: ADENOCARCINOMA PANCREAS
     Dosage: 240 MG, Q2WK
     Route: 042
     Dates: start: 20170208
  2. MOGAMULIZUMAB [Suspect]
     Active Substance: MOGAMULIZUMAB
     Indication: ADENOCARCINOMA PANCREAS
     Dosage: 1 MG/KG, QWK
     Route: 042
     Dates: start: 20170208

REACTIONS (6)
  - Abdominal pain [Recovered/Resolved]
  - Abdominal distension [Recovered/Resolved]
  - Thrombocytopenia [Recovered/Resolved]
  - Abdominal pain [Recovered/Resolved]
  - Malignant ascites [Recovered/Resolved]
  - Ischaemic stroke [Recovered/Resolved]

NARRATIVE: CASE EVENT DATE: 20170223
